FAERS Safety Report 12519467 (Version 1)
Quarter: 2016Q2

REPORT INFORMATION
  Report Type: Spontaneous
  Country: US (occurrence: US)
  Receive Date: 20160630
  Receipt Date: 20160630
  Transmission Date: 20160815
  Serious: No
  Sender: FDA-Public Use
  Company Number: US-TEVA-672507USA

PATIENT
  Sex: Male

DRUGS (9)
  1. AMANTADINE [Concomitant]
     Active Substance: AMANTADINE
  2. MODAFINIL. [Concomitant]
     Active Substance: MODAFINIL
  3. COPAXONE [Suspect]
     Active Substance: GLATIRAMER ACETATE
     Indication: MULTIPLE SCLEROSIS
     Route: 058
     Dates: start: 201404
  4. FLUOXETINE [Concomitant]
     Active Substance: FLUOXETINE HYDROCHLORIDE
  5. CARVEDILOL. [Concomitant]
     Active Substance: CARVEDILOL
  6. VESICARE [Concomitant]
     Active Substance: SOLIFENACIN SUCCINATE
  7. MAGNESIUM OXIDE. [Concomitant]
     Active Substance: MAGNESIUM OXIDE
  8. OXCARBAZEPINE. [Concomitant]
     Active Substance: OXCARBAZEPINE
  9. AMLODIPINE [Concomitant]
     Active Substance: AMLODIPINE BESYLATE

REACTIONS (1)
  - Drug ineffective [Unknown]

NARRATIVE: CASE EVENT DATE: 2016
